FAERS Safety Report 5764418-7 (Version None)
Quarter: 2008Q2

REPORT INFORMATION
  Report Type: 
  Country: None (occurrence: None)
  Receive Date: 20080605
  Receipt Date: 20080523
  Transmission Date: 20081010
  Serious: Yes (Other)
  Sender: FDA-Public Use
  Company Number: 2008AL005883

PATIENT
  Age: 78 Year
  Sex: Female

DRUGS (5)
  1. DIGOXIN [Suspect]
     Dosage: .25MG DAILY PO
     Route: 048
  2. DILTIAZEM [Concomitant]
  3. METFORMIN [Concomitant]
  4. LIPITOR [Concomitant]
  5. COUMADIN [Concomitant]

REACTIONS (6)
  - ASTHENIA [None]
  - CARDIOACTIVE DRUG LEVEL INCREASED [None]
  - CHEST PAIN [None]
  - DIARRHOEA [None]
  - VOMITING [None]
  - WEIGHT DECREASED [None]
